FAERS Safety Report 8579529-0 (Version None)
Quarter: 2012Q3

REPORT INFORMATION
  Report Type: 
  Country: None (occurrence: None)
  Receive Date: 20120808
  Receipt Date: 20120730
  Transmission Date: 20120928
  Serious: Yes (Hospitalization)
  Sender: FDA-Public Use
  Company Number: US-JNJFOC-20120801776

PATIENT
  Sex: Female

DRUGS (2)
  1. REMICADE [Suspect]
     Indication: CROHN'S DISEASE
     Dosage: THIRD INFUSION
     Route: 042
     Dates: start: 20120730, end: 20120730
  2. REMICADE [Suspect]
     Dosage: 280MG SOLUTION, FREQUENCY: ^THIRD^
     Route: 042

REACTIONS (3)
  - BACK PAIN [None]
  - HOSPITALISATION [None]
  - INFUSION RELATED REACTION [None]
